FAERS Safety Report 25277072 (Version 1)
Quarter: 2025Q2

REPORT INFORMATION
  Report Type: Spontaneous
  Country: FR (occurrence: FR)
  Receive Date: 20250507
  Receipt Date: 20250507
  Transmission Date: 20250717
  Serious: Yes (Hospitalization)
  Sender: ALEXION PHARMACEUTICALS
  Company Number: None

PATIENT
  Age: 69 Year
  Weight: 51 kg

DRUGS (9)
  1. TAGRISSO [Suspect]
     Active Substance: OSIMERTINIB
     Indication: Metastatic bronchial carcinoma
     Dosage: 80 MILLIGRAM, QD
  2. PEMETREXED [Suspect]
     Active Substance: PEMETREXED
     Indication: Metastatic bronchial carcinoma
  3. PEMETREXED [Suspect]
     Active Substance: PEMETREXED
  4. PEMETREXED [Suspect]
     Active Substance: PEMETREXED
  5. CARBOPLATIN [Suspect]
     Active Substance: CARBOPLATIN
     Indication: Metastatic bronchial carcinoma
  6. CARBOPLATIN [Suspect]
     Active Substance: CARBOPLATIN
  7. CARBOPLATIN [Suspect]
     Active Substance: CARBOPLATIN
  8. PYRIDOSTIGMINE [Concomitant]
     Active Substance: PYRIDOSTIGMINE
     Route: 065
  9. ELIQUIS [Concomitant]
     Active Substance: APIXABAN
     Route: 065

REACTIONS (1)
  - Systemic scleroderma [Not Recovered/Not Resolved]
